FAERS Safety Report 7311561-7 (Version None)
Quarter: 2011Q1

REPORT INFORMATION
  Report Type: 
  Country: None (occurrence: None)
  Receive Date: 20110224
  Receipt Date: 20110222
  Transmission Date: 20110831
  Serious: Yes (Other)
  Sender: FDA-Public Use
  Company Number: CH-PFIZER INC-2011038151

PATIENT
  Sex: Male
  Weight: 3 kg

DRUGS (2)
  1. XANAX [Suspect]
     Indication: PERSONALITY DISORDER
     Dosage: 0.5 MG, 1X/DAY
     Route: 064
     Dates: end: 20100401
  2. TOPAMAX [Suspect]
     Indication: PERSONALITY DISORDER
     Dosage: 25 MG, 1X/DAY
     Route: 064
     Dates: end: 20100401

REACTIONS (2)
  - DRUG EXPOSURE DURING PREGNANCY [None]
  - PREMATURE BABY [None]
